FAERS Safety Report 6230014-0 (Version None)
Quarter: 2009Q2

REPORT INFORMATION
  Report Type: 
  Country: None (occurrence: None)
  Receive Date: 20090615
  Receipt Date: 20090609
  Transmission Date: 20091009
  Serious: No
  Sender: FDA-Public Use
  Company Number: US-B.I. PHARMACEUTICALS,INC./RIDGEFIELD-2009-BP-07157BP

PATIENT
  Sex: Male

DRUGS (3)
  1. ZANTAC 150 [Suspect]
     Indication: ABDOMINAL PAIN UPPER
     Route: 048
     Dates: start: 20090524
  2. ZANTAC 150 [Suspect]
     Indication: FLATULENCE
  3. TUMS [Suspect]
     Indication: ABDOMINAL PAIN UPPER
     Dates: start: 20090524, end: 20090605

REACTIONS (3)
  - DIARRHOEA [None]
  - FAECES DISCOLOURED [None]
  - RENAL CYST [None]
